FAERS Safety Report 19738457 (Version 1)
Quarter: 2021Q3

REPORT INFORMATION
  Report Type: Spontaneous
  Country: US (occurrence: US)
  Receive Date: 20210823
  Receipt Date: 20210823
  Transmission Date: 20211014
  Serious: Yes (Death)
  Sender: FDA-Public Use
  Company Number: None

PATIENT
  Age: 55 Year
  Sex: Female
  Weight: 103.5 kg

DRUGS (2)
  1. REMDESIVIR 200 MG IN SODIUM CHLORIDE 0.9% 250 ML INFUSION [Suspect]
     Active Substance: REMDESIVIR
     Indication: COVID-19 PNEUMONIA
     Route: 041
     Dates: start: 20210818, end: 20210818
  2. REGEN?COV [Suspect]
     Active Substance: CASIRIVIMAB\IMDEVIMAB
     Indication: COVID-19
     Route: 058
     Dates: start: 20210816, end: 20210816

REACTIONS (1)
  - Completed suicide [None]

NARRATIVE: CASE EVENT DATE: 20210819
